FAERS Safety Report 5246573-0 (Version None)
Quarter: 2007Q1

REPORT INFORMATION
  Report Type: 
  Country: None (occurrence: None)
  Receive Date: 20070222
  Receipt Date: 20070222
  Transmission Date: 20070707
  Serious: Yes (Death)
  Sender: FDA-Public Use
  Company Number: None

PATIENT
  Age: 67 Year
  Sex: Female
  Weight: 47.6277 kg

DRUGS (1)
  1. ARANESP [Suspect]

REACTIONS (3)
  - CARDIAC FAILURE [None]
  - RENAL FAILURE [None]
  - SEPSIS [None]
